FAERS Safety Report 6163660-3 (Version None)
Quarter: 2009Q2

REPORT INFORMATION
  Report Type: 
  Country: None (occurrence: None)
  Receive Date: 20090422
  Receipt Date: 20090414
  Transmission Date: 20091009
  Serious: Yes (Other)
  Sender: FDA-Public Use
  Company Number: US-ROCHE-627801

PATIENT
  Sex: Female
  Weight: 94.3 kg

DRUGS (1)
  1. CAPECITABINE [Suspect]
     Dosage: 02 WEEKS ON AND 01 WEEK OFF.
     Route: 048
     Dates: start: 20090129, end: 20090401

REACTIONS (1)
  - DISEASE PROGRESSION [None]
